FAERS Safety Report 5140249-6 (Version None)
Quarter: 2006Q4

REPORT INFORMATION
  Report Type: 
  Country: None (occurrence: None)
  Receive Date: 20061025
  Receipt Date: 20061009
  Transmission Date: 20070319
  Serious: Yes (Hospitalization)
  Sender: FDA-Public Use
  Company Number: PIR 0610015

PATIENT
  Age: 64 Year
  Sex: Female

DRUGS (1)
  1. SODIUM CHLORIDE 0.9% [Suspect]

REACTIONS (6)
  - BLADDER INJURY [None]
  - BLADDER PERFORATION [None]
  - DELAYED EFFECTS OF RADIATION [None]
  - IATROGENIC INJURY [None]
  - PERITONITIS [None]
  - RADIATION INJURY [None]
